FAERS Safety Report 20229069 (Version 1)
Quarter: 2021Q4

REPORT INFORMATION
  Report Type: Spontaneous
  Country: US (occurrence: None)
  Receive Date: 20211225
  Receipt Date: 20211225
  Transmission Date: 20220303
  Serious: No
  Sender: FDA-Public Use
  Company Number: 2021A896224

PATIENT
  Age: 46 Year
  Sex: Male
  Weight: 110.7 kg

DRUGS (1)
  1. FARXIGA [Suspect]
     Active Substance: DAPAGLIFLOZIN PROPANEDIOL
     Indication: Diabetes mellitus
     Route: 048
     Dates: start: 202112

REACTIONS (2)
  - Dysgeusia [Unknown]
  - Sweat gland disorder [Unknown]

NARRATIVE: CASE EVENT DATE: 20211201
